FAERS Safety Report 4996814-X (Version None)
Quarter: 2006Q2

REPORT INFORMATION
  Report Type: 
  Country: None (occurrence: None)
  Receive Date: 20060509
  Receipt Date: 20060126
  Transmission Date: 20061013
  Serious: Yes (Hospitalization)
  Sender: FDA-Public Use
  Company Number: US-MERCK-0601USA03590

PATIENT
  Age: 69 Year
  Sex: Female
  Weight: 68 kg

DRUGS (13)
  1. VIOXX [Suspect]
     Indication: BACK PAIN
     Route: 048
     Dates: start: 20000609, end: 20010822
  2. VIOXX [Suspect]
     Route: 048
     Dates: start: 20040615, end: 20040914
  3. VIOXX [Suspect]
     Indication: OSTEOARTHRITIS
     Route: 048
     Dates: start: 20000609, end: 20010822
  4. VIOXX [Suspect]
     Route: 048
     Dates: start: 20040615, end: 20040914
  5. PROZAC [Concomitant]
     Indication: ANTIDEPRESSANT THERAPY
     Route: 065
  6. PREMPRO [Concomitant]
     Route: 065
  7. FEMHRT [Concomitant]
     Route: 065
  8. CEPHALEXIN [Concomitant]
     Route: 065
  9. ELOCON [Concomitant]
     Route: 065
  10. TEMOVATE [Concomitant]
     Route: 065
  11. SYNTHROID [Concomitant]
     Indication: HYPOTHYROIDISM
     Route: 047
     Dates: start: 19991101
  12. DIMETHYL SULFONE [Concomitant]
     Route: 065
  13. CHONDROITIN SULFATE SODIUM AND GLUCOSAMINE HYDROCHLORIDE [Concomitant]
     Route: 065

REACTIONS (12)
  - BLOOD CHOLESTEROL INCREASED [None]
  - CEREBROVASCULAR ACCIDENT [None]
  - DEPRESSION [None]
  - HORMONE LEVEL ABNORMAL [None]
  - HYPERSENSITIVITY [None]
  - HYPERTENSION [None]
  - MENOPAUSE [None]
  - MUSCLE SPASMS [None]
  - NECK INJURY [None]
  - OEDEMA [None]
  - SKIN DISORDER [None]
  - VENTRICULAR HYPERTROPHY [None]
